FAERS Safety Report 5150109-2 (Version None)
Quarter: 2006Q4

REPORT INFORMATION
  Report Type: 
  Country: None (occurrence: None)
  Receive Date: 20061114
  Receipt Date: 20061106
  Transmission Date: 20070319
  Serious: Yes (Hospitalization)
  Sender: FDA-Public Use
  Company Number: NL-JNJFOC-20051202882

PATIENT
  Sex: Female
  Weight: 53.5 kg

DRUGS (6)
  1. INFLIXIMAB [Suspect]
     Route: 042
  2. INFLIXIMAB [Suspect]
     Route: 042
  3. INFLIXIMAB [Suspect]
     Indication: CROHN'S DISEASE
     Route: 042
  4. PREDNISON [Concomitant]
     Indication: CROHN'S DISEASE
     Route: 065
  5. ENTOCORT [Concomitant]
     Indication: CROHN'S DISEASE
     Route: 065
  6. ACTONEL [Concomitant]
     Indication: OSTEOPOROSIS PROPHYLAXIS
     Route: 065

REACTIONS (2)
  - PANCREATIC CARCINOMA [None]
  - PANCREATIC CARCINOMA METASTATIC [None]
